FAERS Safety Report 4391456-1 (Version None)
Quarter: 2004Q3

REPORT INFORMATION
  Report Type: 
  Country: None (occurrence: None)
  Receive Date: 20040707
  Receipt Date: 20040622
  Transmission Date: 20050211
  Serious: Yes (Hospitalization)
  Sender: FDA-Public Use
  Company Number: SE-GLAXOSMITHKLINE-B0336957A

PATIENT
  Sex: Female

DRUGS (4)
  1. VALTREX [Suspect]
     Dosage: 500MG SIX TIMES PER DAY
     Route: 065
     Dates: start: 20010520
  2. PREDNISOLONE [Suspect]
     Dosage: 5MG TEN TIMES PER DAY
     Route: 065
     Dates: start: 20010520, end: 20010529
  3. COZAAR [Concomitant]
     Dosage: 50MG UNKNOWN
     Route: 065
  4. PREMARINA [Concomitant]
     Dosage: .625MG UNKNOWN
     Route: 065

REACTIONS (10)
  - CHEST DISCOMFORT [None]
  - HAEMATOMA [None]
  - HEADACHE [None]
  - HYPERHIDROSIS [None]
  - HYPERTENSION [None]
  - LABILE BLOOD PRESSURE [None]
  - SKIN ATROPHY [None]
  - TINNITUS [None]
  - TREMOR [None]
  - WEIGHT DECREASED [None]
